FAERS Safety Report 19390421 (Version 1)
Quarter: 2021Q2

REPORT INFORMATION
  Report Type: Spontaneous
  Country: US (occurrence: US)
  Receive Date: 20210608
  Receipt Date: 20210608
  Transmission Date: 20210717
  Serious: Yes (Other)
  Sender: FDA-Public Use
  Company Number: US-GLAXOSMITHKLINE-US2021116980

PATIENT
  Age: 71 Year
  Sex: Female

DRUGS (1)
  1. INCRUSE ELLIPTA [Suspect]
     Active Substance: UMECLIDINIUM BROMIDE
     Indication: CHRONIC OBSTRUCTIVE PULMONARY DISEASE
     Dosage: 1 PUFF(S), QD, 6.25 MCG
     Route: 055
     Dates: start: 202011, end: 202101

REACTIONS (6)
  - Dry mouth [Recovered/Resolved]
  - Cough [Recovered/Resolved]
  - Throat tightness [Recovered/Resolved]
  - Coronavirus infection [Unknown]
  - Nephrolithiasis [Unknown]
  - Lung operation [Unknown]

NARRATIVE: CASE EVENT DATE: 202011
